FAERS Safety Report 7793141-2 (Version None)
Quarter: 2011Q4

REPORT INFORMATION
  Report Type: 
  Country: None (occurrence: None)
  Receive Date: 20111003
  Receipt Date: 20110922
  Transmission Date: 20120403
  Serious: Yes (Other)
  Sender: FDA-Public Use
  Company Number: AT-ASTRAZENECA-2011SE56673

PATIENT
  Age: 27 Year
  Sex: Male

DRUGS (8)
  1. SEROQUEL XR [Suspect]
     Indication: DEPRESSION
     Route: 048
  2. DULOXETIN [Concomitant]
  3. VENLAFAXINE HYDROCHLORIDE [Concomitant]
  4. SEROQUEL XR [Suspect]
     Route: 048
  5. BUPROPION HCL [Concomitant]
  6. LAMOTRIGINE [Concomitant]
  7. SEROQUEL XR [Suspect]
     Route: 048
  8. ESCITALOPRAM [Concomitant]

REACTIONS (3)
  - FATIGUE [None]
  - ANTIPSYCHOTIC DRUG LEVEL BELOW THERAPEUTIC [None]
  - OVERDOSE [None]
